FAERS Safety Report 5104473-0 (Version None)
Quarter: 2006Q3

REPORT INFORMATION
  Report Type: 
  Country: None (occurrence: None)
  Receive Date: 20060914
  Receipt Date: 20060905
  Transmission Date: 20061208
  Serious: Yes (Hospitalization)
  Sender: FDA-Public Use
  Company Number: FR-BAYER-200610822BFR

PATIENT
  Age: 62 Year
  Sex: Male

DRUGS (10)
  1. CIFLOX [Suspect]
     Indication: URINARY TRACT INFECTION
     Dosage: TOTAL DAILY DOSE: 250 MG  UNIT DOSE: 250 MG
     Route: 048
     Dates: start: 20060721, end: 20060724
  2. DI-ANTALVIC [Suspect]
     Indication: URINARY TRACT INFECTION
     Route: 048
     Dates: start: 20060723, end: 20060731
  3. CLAMOXYL [Suspect]
     Indication: URINARY TRACT INFECTION
     Route: 048
     Dates: start: 20060725, end: 20060810
  4. OROKEN [Suspect]
     Indication: URINARY TRACT INFECTION
     Dosage: TOTAL DAILY DOSE: 200 MG  UNIT DOSE: 200 MG
     Route: 048
     Dates: start: 20060724, end: 20060810
  5. ORELOX [Concomitant]
     Indication: URINARY TRACT INFECTION
     Dates: start: 20060614
  6. GENTALLINE [Concomitant]
     Indication: URINARY TRACT INFECTION
     Dates: start: 20060614
  7. TEGELINE [Concomitant]
     Indication: PURPURA
     Dates: start: 20060721
  8. POLYIONIQUE [Concomitant]
     Indication: UNEVALUABLE EVENT
  9. CORTANCYL [Concomitant]
     Indication: UNEVALUABLE EVENT
  10. LIORESAL [Concomitant]
     Indication: UNEVALUABLE EVENT

REACTIONS (2)
  - THROMBOCYTOPENIA [None]
  - THROMBOCYTOPENIC PURPURA [None]
